FAERS Safety Report 18743631 (Version 2)
Quarter: 2021Q1

REPORT INFORMATION
  Report Type: Spontaneous
  Country: US (occurrence: US)
  Receive Date: 20210115
  Receipt Date: 20210211
  Transmission Date: 20210419
  Serious: No
  Sender: FDA-Public Use
  Company Number: US-JNJFOC-20210115931

PATIENT
  Age: 63 Year
  Sex: Female

DRUGS (1)
  1. REMICADE [Suspect]
     Active Substance: INFLIXIMAB
     Indication: COLITIS ULCERATIVE
     Route: 042
     Dates: start: 202006, end: 202009

REACTIONS (7)
  - Chest pain [Recovered/Resolved]
  - Alopecia [Unknown]
  - Nausea [Recovered/Resolved]
  - Chills [Recovered/Resolved]
  - Migraine [Recovered/Resolved]
  - Drug specific antibody [Unknown]
  - Vomiting [Recovered/Resolved]

NARRATIVE: CASE EVENT DATE: 202009
